FAERS Safety Report 12784050 (Version 3)
Quarter: 2016Q4

REPORT INFORMATION
  Report Type: Report from Study
  Country: CA (occurrence: CA)
  Receive Date: 20160927
  Receipt Date: 20161117
  Transmission Date: 20170207
  Serious: Yes (Other)
  Sender: FDA-Public Use
  Company Number: CA-JNJFOC-20160919906

PATIENT
  Age: 59 Year
  Sex: Male

DRUGS (3)
  1. SPIRONOLACTONE. [Concomitant]
     Active Substance: SPIRONOLACTONE
     Indication: HYPERTENSION
     Route: 065
  2. SLOW K [Concomitant]
     Active Substance: POTASSIUM CHLORIDE
     Indication: HYPOKALAEMIA
     Route: 065
  3. SIMPONI [Suspect]
     Active Substance: GOLIMUMAB
     Indication: PSORIATIC ARTHROPATHY
     Route: 058
     Dates: start: 20160829

REACTIONS (11)
  - Pain in extremity [Unknown]
  - Faeces discoloured [Unknown]
  - Eye pain [Unknown]
  - Pyrexia [Unknown]
  - Cardiomegaly [Unknown]
  - Neck pain [Unknown]
  - Chest pain [Unknown]
  - Frequent bowel movements [Not Recovered/Not Resolved]
  - Hot flush [Unknown]
  - Haematemesis [Unknown]
  - Primary hyperaldosteronism [Unknown]

NARRATIVE: CASE EVENT DATE: 2016
